FAERS Safety Report 9718210 (Version 1)
Quarter: 2013Q4

REPORT INFORMATION
  Report Type: Spontaneous
  Country: US (occurrence: None)
  Receive Date: 20131125
  Receipt Date: 20131125
  Transmission Date: 20140711
  Serious: Yes (Other)
  Sender: FDA-Public Use
  Company Number: 001629353A

PATIENT
  Age: 15 Year
  Sex: Female

DRUGS (3)
  1. PROACTIV RENEWING CLEANSER [Suspect]
     Indication: ACNE
     Dosage: ONCE DAILY DERMAL
     Dates: start: 20130713, end: 20130901
  2. PROACTIV REPAIRING TREATMENT [Suspect]
     Indication: ACNE
     Dosage: ONCE DAILY DERMAL
     Dates: start: 20130713, end: 20130901
  3. URINARY ANTIBIOTIC [Concomitant]

REACTIONS (4)
  - Rash pruritic [None]
  - Rash erythematous [None]
  - Dyspnoea [None]
  - Swelling [None]
